FAERS Safety Report 6531869-2 (Version None)
Quarter: 2010Q1

REPORT INFORMATION
  Report Type: 
  Country: None (occurrence: None)
  Receive Date: 20100108
  Receipt Date: 20091228
  Transmission Date: 20100710
  Serious: Yes (Hospitalization)
  Sender: FDA-Public Use
  Company Number: FR-BAYER-201010697GPV

PATIENT
  Age: 45 Year
  Sex: Female

DRUGS (5)
  1. IZILOX [Suspect]
     Indication: BRONCHITIS
     Dosage: TOTAL DAILY DOSE: 400 MG  UNIT DOSE: 400 MG
     Route: 048
     Dates: start: 20081223
  2. SOLUPRED 60 [Concomitant]
     Indication: BRONCHITIS
     Route: 048
  3. SERETIDE DISKUS [Concomitant]
     Dosage: AS USED: 500/50 ?G
     Route: 055
  4. VAXIGRIP [Concomitant]
     Indication: IMMUNISATION
     Dosage: TOTAL DAILY DOSE: 1 DF
     Route: 058
     Dates: start: 20081215, end: 20081215
  5. VENTOLIN [Concomitant]

REACTIONS (4)
  - PRURITUS [None]
  - SKIN TEST NEGATIVE [None]
  - TYPE I HYPERSENSITIVITY [None]
  - URTICARIA [None]
